FAERS Safety Report 6865949-9 (Version None)
Quarter: 2010Q3

REPORT INFORMATION
  Report Type: 
  Country: None (occurrence: None)
  Receive Date: 20100722
  Receipt Date: 20080507
  Transmission Date: 20110219
  Serious: Yes (Other)
  Sender: FDA-Public Use
  Company Number: US-PFIZER INC-2008016746

PATIENT
  Sex: Male
  Weight: 88 kg

DRUGS (1)
  1. CHANTIX [Suspect]
     Indication: SMOKING CESSATION THERAPY
     Route: 048
     Dates: start: 20080201, end: 20080216

REACTIONS (5)
  - ABNORMAL BEHAVIOUR [None]
  - ANXIETY [None]
  - CRYING [None]
  - DEPRESSION [None]
  - THINKING ABNORMAL [None]
